FAERS Safety Report 7312739-9 (Version None)
Quarter: 2011Q1

REPORT INFORMATION
  Report Type: 
  Country: None (occurrence: None)
  Receive Date: 20110224
  Receipt Date: 20101001
  Transmission Date: 20110831
  Serious: No
  Sender: FDA-Public Use
  Company Number: US-MYLANLABS-2010S1018485

PATIENT

DRUGS (1)
  1. METFORMIN HCL [Suspect]

REACTIONS (3)
  - EXPIRED DRUG ADMINISTERED [None]
  - TREATMENT NONCOMPLIANCE [None]
  - NO ADVERSE EVENT [None]
